FAERS Safety Report 6057163-4 (Version None)
Quarter: 2009Q1

REPORT INFORMATION
  Report Type: 
  Country: None (occurrence: None)
  Receive Date: 20090129
  Receipt Date: 20071226
  Transmission Date: 20090719
  Serious: No
  Sender: FDA-Public Use
  Company Number: A0701316A

PATIENT
  Sex: Female

DRUGS (4)
  1. WELLBUTRIN [Suspect]
     Indication: DEPRESSION
     Dosage: 300MG IN THE MORNING
     Route: 048
     Dates: start: 20070101, end: 20071001
  2. BUPROPION HYDROCHLORIDE [Suspect]
     Indication: DRUG USE FOR UNKNOWN INDICATION
     Dosage: 450MG IN THE MORNING
     Route: 048
  3. SYNTHROID [Concomitant]
     Indication: HYPOTHYROIDISM
     Dosage: .05MG PER DAY
     Route: 048
  4. TEMAZEPAM [Concomitant]
     Indication: SLEEP DISORDER
     Dosage: 30MG AT NIGHT
     Route: 048

REACTIONS (2)
  - AGEUSIA [None]
  - IRRITABLE BOWEL SYNDROME [None]
